FAERS Safety Report 8049448-7 (Version None)
Quarter: 2012Q1

REPORT INFORMATION
  Report Type: 
  Country: None (occurrence: None)
  Receive Date: 20120117
  Receipt Date: 20120115
  Transmission Date: 20120608
  Serious: Yes (Hospitalization, Disabling, Other)
  Sender: FDA-Public Use
  Company Number: CZ-ROCHE-624772

PATIENT
  Sex: Male

DRUGS (5)
  1. FLUOROURACIL [Concomitant]
     Dosage: DRUG NAME: FOLFOX
  2. AVASTIN [Suspect]
     Indication: PRODUCT USED FOR UNKNOWN INDICATION
     Dosage: SINGLE DOSE OF BEVACIZUMAB: 350 MG
     Route: 065
     Dates: start: 20080912, end: 20081127
  3. AVASTIN [Suspect]
     Route: 041
     Dates: start: 20080909, end: 20080927
  4. OXALIPLATIN [Concomitant]
     Dosage: DRUG NAME: FOLFOX
  5. LEUCOVORIN CALCIUM [Concomitant]
     Dosage: DRUG NAME: FOLFOX

REACTIONS (3)
  - CIRCULATORY COLLAPSE [None]
  - NAUSEA [None]
  - FATIGUE [None]
